FAERS Safety Report 23454693 (Version 1)
Quarter: 2024Q1

REPORT INFORMATION
  Report Type: Spontaneous
  Country: US (occurrence: None)
  Receive Date: 20240130
  Receipt Date: 20240130
  Transmission Date: 20240410
  Serious: Yes (Life-Threatening, Other)
  Sender: FDA-Public Use
  Company Number: US-Emmaus Medical, Inc.-EMM202312-000430

PATIENT
  Age: 28 Year
  Sex: Male
  Weight: 47.17 kg

DRUGS (17)
  1. ENDARI [Suspect]
     Active Substance: GLUTAMINE
     Indication: Sickle cell disease
     Dosage: 10 G (2 PACKETS)
     Route: 048
     Dates: start: 20171106
  2. ENDARI [Suspect]
     Active Substance: GLUTAMINE
     Dosage: 10 G (2 PACKETS)
     Dates: start: 202304
  3. ENDARI [Suspect]
     Active Substance: GLUTAMINE
     Dosage: 10 G (2 PACKETS)
     Route: 048
     Dates: start: 20231011
  4. FOLIC ACID [Concomitant]
     Active Substance: FOLIC ACID
     Indication: Product used for unknown indication
     Dosage: 1 MG
     Route: 048
     Dates: start: 20140224
  5. FOLIC ACID [Concomitant]
     Active Substance: FOLIC ACID
     Dosage: 1 MG, TAKE 1 TABLET
     Route: 048
     Dates: start: 20210308
  6. HYDREA [Concomitant]
     Active Substance: HYDROXYUREA
     Indication: Sickle cell anaemia with crisis
     Dosage: 500 MG (TAKE 20 MG/KG)
     Route: 048
     Dates: start: 20140224
  7. HYDREA [Concomitant]
     Active Substance: HYDROXYUREA
     Dosage: 500 MG
     Route: 065
     Dates: start: 20130720
  8. HYDREA [Concomitant]
     Active Substance: HYDROXYUREA
     Dosage: 500 MG, TAKE 1 CAPSULE
     Route: 048
     Dates: start: 20230117
  9. ADAKVEO [Concomitant]
     Active Substance: CRIZANLIZUMAB-TMCA
     Indication: Product used for unknown indication
     Dosage: 10 MG/ML, INFUSE 5 MG/KG OVER 30 MINUTE
     Route: 042
     Dates: start: 20230828
  10. SODIUM CHLORIDE [Concomitant]
     Active Substance: SODIUM CHLORIDE
     Indication: Product used for unknown indication
     Dosage: 0.9 PERCENT, INFUSE 2 LITER IV FLUIDS OVER 4 HOURS
     Route: 042
     Dates: start: 20210111
  11. VITAMIN D3 [Concomitant]
     Active Substance: CHOLECALCIFEROL
     Indication: Product used for unknown indication
     Dosage: 50 MCG (2,000 UNIT)
     Route: 048
     Dates: start: 20210111
  12. DIPHENHYDRAMINE [Concomitant]
     Active Substance: DIPHENHYDRAMINE
     Indication: Product used for unknown indication
     Dosage: 25 MG, TAKE 1 TABLET
     Route: 048
     Dates: start: 20230828
  13. DIPHENHYDRAMINE [Concomitant]
     Active Substance: DIPHENHYDRAMINE
     Dosage: 50 MG (TAKE 1 TABLET)
     Route: 048
     Dates: start: 20140224
  14. DULOXETINE [Concomitant]
     Active Substance: DULOXETINE
     Indication: Product used for unknown indication
     Dosage: 60 MG, TAKE 1 CAPSULE
     Route: 048
     Dates: start: 20231104
  15. PENICILLIN V POTASSIUM [Concomitant]
     Active Substance: PENICILLIN V POTASSIUM
     Indication: Product used for unknown indication
     Dosage: 500 MG
     Route: 065
     Dates: start: 20130716
  16. PENICILLIN V POTASSIUM [Concomitant]
     Active Substance: PENICILLIN V POTASSIUM
     Dosage: 500 MG
     Route: 065
     Dates: start: 20230306
  17. ACETAMINOPHEN\OXYCODONE HYDROCHLORIDE [Concomitant]
     Active Substance: ACETAMINOPHEN\OXYCODONE HYDROCHLORIDE
     Indication: Product used for unknown indication
     Dosage: 7.5 MG-325 MG, TAKE 1 TABLET
     Route: 048
     Dates: start: 20231110

REACTIONS (25)
  - Suicidal ideation [Unknown]
  - Pancytopenia [Unknown]
  - Cardiac failure congestive [Unknown]
  - Pneumonia [Unknown]
  - Osteonecrosis [Unknown]
  - Substance use disorder [Unknown]
  - Hypokalaemia [Unknown]
  - Haemolysis [Unknown]
  - Bone infarction [Unknown]
  - Sickle cell anaemia with crisis [Unknown]
  - Acute chest syndrome [Unknown]
  - Hypersensitivity [Unknown]
  - Iron overload [Unknown]
  - Haemosiderosis [Unknown]
  - Hypomagnesaemia [Unknown]
  - Dehydration [Unknown]
  - Leukocytosis [Unknown]
  - Gastroenteritis [Unknown]
  - Vomiting [Unknown]
  - Contusion [Unknown]
  - Diarrhoea [Unknown]
  - Blood bilirubin increased [Unknown]
  - Anaemia [Unknown]
  - Cough [Unknown]
  - Nausea [Unknown]

NARRATIVE: CASE EVENT DATE: 20211219
